FAERS Safety Report 25046408 (Version 1)
Quarter: 2025Q1

REPORT INFORMATION
  Report Type: Spontaneous
  Country: GB (occurrence: GB)
  Receive Date: 20250306
  Receipt Date: 20250306
  Transmission Date: 20250409
  Serious: Yes (Death, Other)
  Sender: ELI LILLY AND COMPANY
  Company Number: None

PATIENT
  Age: 37 Year
  Sex: Female

DRUGS (2)
  1. MOUNJARO [Suspect]
     Active Substance: TIRZEPATIDE
     Indication: Weight control
     Route: 065
     Dates: start: 20250217, end: 20250219
  2. DULOXETINE [Concomitant]
     Active Substance: DULOXETINE
     Indication: Depression
     Dates: start: 20250108

REACTIONS (8)
  - Cerebrovascular accident [Fatal]
  - Seizure [Unknown]
  - Gaze palsy [Not Recovered/Not Resolved]
  - Extra dose administered [Unknown]
  - Dysarthria [Not Recovered/Not Resolved]
  - Fall [Unknown]
  - Intentional product misuse [Unknown]
  - Asthenia [Unknown]

NARRATIVE: CASE EVENT DATE: 20250219
